FAERS Safety Report 20172312 (Version 3)
Quarter: 2022Q1

REPORT INFORMATION
  Report Type: Spontaneous
  Country: US (occurrence: US)
  Receive Date: 20211210
  Receipt Date: 20220104
  Transmission Date: 20220423
  Serious: No
  Sender: FDA-Public Use
  Company Number: US-PFIZER INC-202101402392

PATIENT
  Age: 76 Year
  Sex: Female

DRUGS (5)
  1. LYRICA CR [Suspect]
     Active Substance: PREGABALIN
     Indication: Pain
     Dosage: 330 MG, 2X/DAY
     Route: 048
  2. LYRICA CR [Suspect]
     Active Substance: PREGABALIN
     Indication: Post herpetic neuralgia
     Dosage: 2 DF, 2X/DAY (TAKE 2 TABS BID)
  3. LYRICA CR [Suspect]
     Active Substance: PREGABALIN
     Dosage: 165 MG, 2X/DAY
     Route: 048
  4. LYRICA CR [Suspect]
     Active Substance: PREGABALIN
     Dosage: 330 MG, 2X/DAY, (82.5MG 4 TABLETS TWICE DAILY)
     Route: 048
  5. SIMVASTATIN [Concomitant]
     Active Substance: SIMVASTATIN
     Dosage: UNK

REACTIONS (3)
  - Drug ineffective [Unknown]
  - Fatigue [Unknown]
  - Feeling abnormal [Unknown]
